FAERS Safety Report 8590626-6 (Version None)
Quarter: 2012Q3

REPORT INFORMATION
  Report Type: 
  Country: None (occurrence: None)
  Receive Date: 20120813
  Receipt Date: 20120808
  Transmission Date: 20120928
  Serious: No
  Sender: FDA-Public Use
  Company Number: US-PFIZER INC-2012194196

PATIENT
  Age: 45 Year
  Sex: Female
  Weight: 108 kg

DRUGS (17)
  1. METFORMIN [Concomitant]
     Indication: TYPE 2 DIABETES MELLITUS
     Dosage: 500 MG, 2X/DAY
  2. KETOCONAZOLE [Concomitant]
     Indication: ECZEMA
     Dosage: UNK, 2X/DAY
     Route: 061
  3. AMITRIPTYLINE [Concomitant]
     Indication: HEADACHE
     Dosage: 50 MG, DAILY
  4. MOTRIN [Concomitant]
     Indication: HEADACHE
     Dosage: 400 MG, 2X/DAY
  5. ROBAXIN [Concomitant]
     Indication: PAIN
     Dosage: 750 MG THREE TIMES, AS NEEDED
     Route: 048
  6. METOPROLOL [Concomitant]
     Indication: HYPERTENSION
     Dosage: 50 MG, DAILY
  7. FISH OIL [Concomitant]
     Indication: BLOOD CHOLESTEROL INCREASED
     Dosage: 1000 MG, 3X/DAY
  8. LISINOPRIL [Concomitant]
     Indication: HYPERTENSION
     Dosage: 10 MG, DAILY
  9. MOTRIN [Concomitant]
     Indication: MIGRAINE
  10. SIMVASTATIN [Concomitant]
     Indication: BLOOD CHOLESTEROL INCREASED
     Dosage: 40 MG, DAILY
  11. VICODIN [Concomitant]
     Indication: BACK DISORDER
     Dosage: 5/500 MG, 2X/DAY
     Route: 048
  12. LYRICA [Suspect]
     Indication: BACK DISORDER
     Dosage: 150 MG, 2X/DAY
     Route: 048
     Dates: start: 20110201
  13. HYDROCHLOROTHIAZIDE [Concomitant]
     Indication: HYPERTENSION
     Dosage: 25 MG, DAILY
  14. NIACIN [Concomitant]
     Indication: BLOOD CHOLESTEROL INCREASED
     Dosage: 500 MG, DAILY
  15. MOBIC [Concomitant]
     Indication: INTERVERTEBRAL DISC PROTRUSION
     Dosage: 7.5 MG, DAILY
  16. ASPIRIN [Concomitant]
     Indication: FLUSHING
     Dosage: 81 MG, DAILY
  17. PREVACID [Concomitant]
     Indication: GASTROOESOPHAGEAL REFLUX DISEASE
     Dosage: 20 MG, 2X/DAY

REACTIONS (1)
  - TOOTHACHE [None]
